FAERS Safety Report 18378462 (Version 1)
Quarter: 2020Q4

REPORT INFORMATION
  Report Type: Report from Study
  Country: IE (occurrence: IE)
  Receive Date: 20201013
  Receipt Date: 20201013
  Transmission Date: 20210114
  Serious: Yes (Hospitalization)
  Sender: FDA-Public Use
  Company Number: IE-JNJFOC-20200903864

PATIENT
  Age: 66 Year
  Sex: Male

DRUGS (13)
  1. TREMFYA [Suspect]
     Active Substance: GUSELKUMAB
     Indication: PSORIASIS
     Route: 058
     Dates: start: 20190613
  2. METFORMIN [Concomitant]
     Active Substance: METFORMIN HYDROCHLORIDE
     Route: 050
  3. ROSUVASTATIN. [Concomitant]
     Active Substance: ROSUVASTATIN
     Route: 050
  4. RAMIPRIL. [Concomitant]
     Active Substance: RAMIPRIL
     Route: 050
  5. TREMFYA [Suspect]
     Active Substance: GUSELKUMAB
  6. TREMFYA [Suspect]
     Active Substance: GUSELKUMAB
  7. EZETROL [Concomitant]
     Active Substance: EZETIMIBE
     Route: 050
  8. ASPRIN [Concomitant]
     Active Substance: ASPIRIN
     Route: 050
  9. JANUVIA [Concomitant]
     Active Substance: SITAGLIPTIN PHOSPHATE
     Route: 050
  10. OMEPRAZOLE. [Concomitant]
     Active Substance: OMEPRAZOLE
     Route: 050
  11. BISOPROLOL [Concomitant]
     Active Substance: BISOPROLOL
     Route: 050
  12. DIACRONAL MR [Concomitant]
     Route: 050
  13. LANTUS [Concomitant]
     Active Substance: INSULIN GLARGINE
     Dosage: 14  UNITS
     Route: 050

REACTIONS (1)
  - Hospitalisation [Not Recovered/Not Resolved]

NARRATIVE: CASE EVENT DATE: 20200902
